FAERS Safety Report 20096962 (Version 1)
Quarter: 2021Q4

REPORT INFORMATION
  Report Type: Spontaneous
  Country: US (occurrence: US)
  Receive Date: 20211122
  Receipt Date: 20211122
  Transmission Date: 20220303
  Serious: No
  Sender: FDA-Public Use
  Company Number: US-PFIZER INC-202101374398

PATIENT
  Sex: Female

DRUGS (2)
  1. SERTRALINE HYDROCHLORIDE [Suspect]
     Active Substance: SERTRALINE HYDROCHLORIDE
     Indication: Depression
     Dosage: UNK
  2. SERTRALINE HYDROCHLORIDE [Suspect]
     Active Substance: SERTRALINE HYDROCHLORIDE
     Dosage: 100 MG, 2X/DAY (100 MG X 2 DAILY)

REACTIONS (12)
  - Drug ineffective [Unknown]
  - Feeling abnormal [Unknown]
  - Illness [Unknown]
  - Depressed mood [Unknown]
  - Anxiety [Unknown]
  - Feeling of despair [Unknown]
  - Helplessness [Unknown]
  - Anhedonia [Unknown]
  - Apathy [Unknown]
  - Poor quality sleep [Unknown]
  - Illness [Unknown]
  - Loss of personal independence in daily activities [Unknown]
